FAERS Safety Report 11171079 (Version 1)
Quarter: 2015Q2

REPORT INFORMATION
  Report Type: Spontaneous
  Country: SA (occurrence: SA)
  Receive Date: 20150608
  Receipt Date: 20150608
  Transmission Date: 20150821
  Serious: Yes (Hospitalization)
  Sender: FDA-Public Use
  Company Number: SA-MYLANLABS-2015M1018440

PATIENT

DRUGS (1)
  1. MAPROTILINE [Suspect]
     Active Substance: MAPROTILINE
     Route: 048

REACTIONS (6)
  - Staring [Recovered/Resolved]
  - Atrioventricular block first degree [Recovered/Resolved]
  - Accidental exposure to product by child [Recovered/Resolved]
  - Overdose [Recovered/Resolved]
  - Generalised tonic-clonic seizure [Recovered/Resolved]
  - Mydriasis [Recovered/Resolved]
